FAERS Safety Report 4446507-2 (Version None)
Quarter: 2004Q3

REPORT INFORMATION
  Report Type: 
  Country: None (occurrence: None)
  Receive Date: 20040908
  Receipt Date: 20040819
  Transmission Date: 20050211
  Serious: Yes (Other)
  Sender: FDA-Public Use
  Company Number: 2004-DE-04442GD

PATIENT
  Sex: Male

DRUGS (1)
  1. TAMSULOSIN (TAMSULOSIN) [Suspect]
     Dosage: 0.4 MG

REACTIONS (6)
  - GASTROINTESTINAL DISORDER [None]
  - HEADACHE [None]
  - HYPERTENSION [None]
  - RHINITIS [None]
  - URINARY RETENTION [None]
  - URINARY TRACT INFECTION [None]
